FAERS Safety Report 8924772 (Version 2)
Quarter: 2012Q4

REPORT INFORMATION
  Report Type: 
  Country: US (occurrence: US)
  Receive Date: 20121126
  Receipt Date: 20121128
  Transmission Date: 20130627
  Serious: Yes (Death, Other)
  Sender: FDA-Public Use
  Company Number: US-PFIZER INC-US-WYE-H07165208

PATIENT
  Age: 33 Year
  Sex: Male

DRUGS (5)
  1. IBUPROFEN [Suspect]
     Indication: DRUG USE FOR UNKNOWN INDICATION
     Dosage: UNK
     Route: 065
  2. ZOLOFT [Suspect]
     Indication: DEPRESSION
     Dosage: 50 mg, UNK
     Route: 065
     Dates: start: 200504
  3. ZOLOFT [Suspect]
     Indication: ANGER
  4. ZOLOFT [Suspect]
     Indication: ANXIETY
  5. ALCOHOL [Suspect]

REACTIONS (1)
  - Death [Fatal]
